FAERS Safety Report 7772831-1 (Version None)
Quarter: 2011Q3

REPORT INFORMATION
  Report Type: 
  Country: None (occurrence: None)
  Receive Date: 20110922
  Receipt Date: 20110421
  Transmission Date: 20111222
  Serious: No
  Sender: FDA-Public Use
  Company Number: US-ASTRAZENECA-2011SE23890

PATIENT
  Age: 55 Year
  Sex: Male

DRUGS (3)
  1. KLONOPIN [Concomitant]
     Indication: ANXIETY
  2. SEROQUEL [Suspect]
     Indication: DEPRESSION
     Route: 048
     Dates: start: 20110331, end: 20110419
  3. ANAFRANIL [Concomitant]
     Indication: OBSESSIVE-COMPULSIVE DISORDER

REACTIONS (3)
  - INSOMNIA [None]
  - OFF LABEL USE [None]
  - DRUG DOSE OMISSION [None]
